FAERS Safety Report 20027801 (Version 2)
Quarter: 2022Q2

REPORT INFORMATION
  Report Type: Spontaneous
  Country: CA (occurrence: CA)
  Receive Date: 20211103
  Receipt Date: 20220620
  Transmission Date: 20220720
  Serious: Yes (Other)
  Sender: FDA-Public Use
  Company Number: CA-BAYER-2021A216441

PATIENT
  Sex: Male

DRUGS (2)
  1. EYLEA [Suspect]
     Active Substance: AFLIBERCEPT
     Indication: Product used for unknown indication
     Dosage: RIGHT EYE, TOTAL OF 53 DOSES PRIOR THE EVENT, SOLUTION FOR INJECTION IN PFS
     Route: 031
  2. EYLEA [Suspect]
     Active Substance: AFLIBERCEPT
     Dosage: RIGHT EYE, LAST DOSE, SOLUTION FOR INJECTION IN PFS
     Route: 031
     Dates: start: 20210826, end: 20210826

REACTIONS (6)
  - Keratic precipitates [Unknown]
  - Anterior chamber cell [Unknown]
  - Vitritis [Unknown]
  - Vitritis [Unknown]
  - Vitritis [Unknown]
  - Iritis [Unknown]

NARRATIVE: CASE EVENT DATE: 20210101
